FAERS Safety Report 10050011 (Version 1)
Quarter: 2014Q2

REPORT INFORMATION
  Report Type: Spontaneous
  Country: US (occurrence: US)
  Receive Date: 20140401
  Receipt Date: 20140401
  Transmission Date: 20141212
  Serious: Yes (Other)
  Sender: FDA-Public Use
  Company Number: US-009507513-1403USA011611

PATIENT
  Sex: Female
  Weight: 81.63 kg

DRUGS (9)
  1. ZOCOR [Suspect]
     Indication: BLOOD CHOLESTEROL INCREASED
     Dosage: UNK
     Route: 048
     Dates: end: 2011
  2. HYZAAR [Concomitant]
     Indication: HYPERTENSION
     Dosage: 100/25 MG, DAILY
     Route: 048
  3. TEGRETOL [Concomitant]
     Indication: PERIPHERAL EMBOLISM
     Dosage: 200 MG, QD
  4. TEGRETOL [Concomitant]
     Indication: TRIGEMINAL NEURALGIA
  5. FLEXERIL [Concomitant]
     Indication: BACK DISORDER
     Dosage: 10 MG, PRN
  6. AMLODIPINE [Concomitant]
     Indication: HYPERTENSION
     Dosage: 10 MG, QD
  7. LEVOTHYROXINE SODIUM [Concomitant]
     Dosage: 75 MICROGRAM, QD
     Route: 048
  8. CLONAZEPAM [Concomitant]
     Indication: ANXIETY
     Dosage: 2 MG, PRN
  9. VITAMIN D (UNSPECIFIED) [Concomitant]
     Dosage: 50000 MILLION IU, QW

REACTIONS (7)
  - Sepsis [Unknown]
  - Pancreatitis [Unknown]
  - Bile duct stone [Unknown]
  - Blood cholesterol increased [Unknown]
  - Muscle spasms [Unknown]
  - Abdominal discomfort [Unknown]
  - Nausea [Unknown]
